FAERS Safety Report 20541544 (Version 1)
Quarter: 2022Q1

REPORT INFORMATION
  Report Type: Report from Study
  Country: CO (occurrence: CO)
  Receive Date: 20220302
  Receipt Date: 20220302
  Transmission Date: 20220423
  Serious: Yes (Other)
  Sender: FDA-Public Use
  Company Number: CO-JNJFOC-20211203182

PATIENT
  Age: 45 Year
  Sex: Male
  Weight: 82 kg

DRUGS (1)
  1. TREMFYA [Suspect]
     Active Substance: GUSELKUMAB
     Indication: Psoriasis
     Dosage: LAST APPLICATION DATE: JUL/16/2021.
     Route: 058
     Dates: start: 20201211

REACTIONS (2)
  - Liver injury [Recovering/Resolving]
  - Tuberculin test positive [Unknown]

NARRATIVE: CASE EVENT DATE: 20211101
